FAERS Safety Report 9544914 (Version 2)
Quarter: 2014Q1

REPORT INFORMATION
  Report Type: Report from Study
  Country: DE (occurrence: DE)
  Receive Date: 20130923
  Receipt Date: 20140113
  Transmission Date: 20141002
  Serious: Yes (Hospitalization)
  Sender: FDA-Public Use
  Company Number: DE-CELGENEUS-062-21660-13091635

PATIENT
  Age: 56 Year
  Sex: Female
  Weight: 76 kg

DRUGS (4)
  1. ABRAXANE [Suspect]
     Indication: BREAST CANCER METASTATIC
     Dosage: 262 MILLIGRAM
     Route: 041
     Dates: start: 20130723
  2. ZOLPIDEM [Suspect]
     Indication: SLEEP DISORDER
     Route: 065
  3. VENLAFAXIN [Suspect]
     Indication: ANTIDEPRESSANT THERAPY
     Route: 065
  4. THYROID HORMONES [Concomitant]
     Indication: THYROID DISORDER
     Route: 065
     Dates: start: 2000

REACTIONS (1)
  - Syncope [Recovered/Resolved]
